FAERS Safety Report 5251937-5 (Version None)
Quarter: 2007Q1

REPORT INFORMATION
  Report Type: 
  Country: None (occurrence: None)
  Receive Date: 20070223
  Receipt Date: 20070213
  Transmission Date: 20070707
  Serious: Yes (Death)
  Sender: FDA-Public Use
  Company Number: 235798

PATIENT
  Age: 76 Year
  Sex: Male
  Weight: 68.9 kg

DRUGS (7)
  1. RITUXIMAB OR PLACEBO(PLACEBO) [Suspect]
     Indication: RHEUMATOID ARTHRITIS
     Dosage: 1000 MG, DAYS 1+15, INTRAVENOUS
     Route: 042
     Dates: start: 20060607, end: 20061213
  2. RITUXAN [Suspect]
     Indication: RHEUMATOID ARTHRITIS
     Dosage: 1000 MG, DAYS 1+15, INTRAVENOUS
     Route: 042
     Dates: start: 20060607
  3. KAOPECTATE (KAOLIN, PECTIN) [Concomitant]
  4. MAALOX (ALUMINUM HYDROXIDE, MAGNESIUM HYDROXIDE) [Concomitant]
  5. ESOMEPRAZOLE (ESOMEPRAZOLE MAGNESIUM) [Concomitant]
  6. GINGER (GINGER) [Concomitant]
  7. FLUVIRIN (INFLUENZA VIRUS VACCINE) [Concomitant]

REACTIONS (4)
  - ABDOMINAL PAIN [None]
  - COUGH [None]
  - DYSPNOEA [None]
  - WEIGHT DECREASED [None]
